FAERS Safety Report 13396127 (Version 1)
Quarter: 2017Q2

REPORT INFORMATION
  Report Type: Spontaneous
  Country: US (occurrence: US)
  Receive Date: 20170403
  Receipt Date: 20170403
  Transmission Date: 20170830
  Serious: No
  Sender: FDA-Public Use
  Company Number: US-GLAXOSMITHKLINE-US2017045934

PATIENT
  Age: 20 Month
  Sex: Female

DRUGS (4)
  1. LAMOTRIGINE. [Suspect]
     Active Substance: LAMOTRIGINE
     Indication: PRODUCT USED FOR UNKNOWN INDICATION
     Dosage: 2.5 MG, QOD
     Dates: start: 20170306
  2. LAMICTAL [Suspect]
     Active Substance: LAMOTRIGINE
     Dosage: 2.5 MG, QD
     Dates: start: 20170319
  3. LAMOTRIGINE. [Suspect]
     Active Substance: LAMOTRIGINE
     Dosage: 2.5 MG, QD
     Dates: start: 20170319
  4. LAMICTAL [Suspect]
     Active Substance: LAMOTRIGINE
     Indication: PRODUCT USED FOR UNKNOWN INDICATION
     Dosage: 2.5 MG, QOD
     Dates: start: 20170306

REACTIONS (3)
  - Vaginal infection [Unknown]
  - Vaginal discharge [Unknown]
  - Product use issue [Unknown]

NARRATIVE: CASE EVENT DATE: 20170306
